FAERS Safety Report 19866234 (Version 1)
Quarter: 2021Q3

REPORT INFORMATION
  Report Type: Spontaneous
  Country: US (occurrence: US)
  Receive Date: 20210922
  Receipt Date: 20210922
  Transmission Date: 20211014
  Serious: No
  Sender: FDA-Public Use
  Company Number: US-SUN PHARMACEUTICAL INDUSTRIES LTD-2021R1-304217

PATIENT
  Sex: Female

DRUGS (2)
  1. LOTEPREDNOL [Suspect]
     Active Substance: LOTEPREDNOL
     Indication: PRODUCT USED FOR UNKNOWN INDICATION
     Dosage: UNK
     Route: 065
  2. LOTEPREDNOL [Suspect]
     Active Substance: LOTEPREDNOL
     Dosage: LOTEPRED ETAB 5MG/5ML OPHTH SUSP 5ML

REACTIONS (2)
  - Abdominal pain upper [Unknown]
  - Flatulence [Unknown]
